FAERS Safety Report 4471654-9 (Version None)
Quarter: 2004Q4

REPORT INFORMATION
  Report Type: 
  Country: None (occurrence: None)
  Receive Date: 20041012
  Receipt Date: 20040817
  Transmission Date: 20050328
  Serious: Yes (Life-Threatening, Other)
  Sender: FDA-Public Use
  Company Number: US-MERCK-0408USA01464

PATIENT
  Age: 53 Year
  Sex: Female
  Weight: 59 kg

DRUGS (5)
  1. WELLBUTRIN [Concomitant]
     Route: 065
  2. LEXAPRO [Concomitant]
     Route: 065
  3. SYNTHROID [Concomitant]
     Route: 065
  4. ATIVAN [Concomitant]
     Route: 065
  5. VIOXX [Suspect]
     Indication: JOINT SPRAIN
     Route: 048
     Dates: start: 20040625, end: 20040630

REACTIONS (1)
  - CARDIAC FAILURE CONGESTIVE [None]
